FAERS Safety Report 15048927 (Version 4)
Quarter: 2018Q4

REPORT INFORMATION
  Report Type: Spontaneous
  Country: US (occurrence: US)
  Receive Date: 20180622
  Receipt Date: 20181010
  Transmission Date: 20190204
  Serious: No
  Sender: FDA-Public Use
  Company Number: US-PFIZER INC-2018253358

PATIENT
  Age: 39 Year
  Sex: Female
  Weight: 72.56 kg

DRUGS (2)
  1. LEVOTHYROXINE. [Concomitant]
     Active Substance: LEVOTHYROXINE
     Indication: THYROID DISORDER
     Dosage: UNK (125 (UNITS NOT STATED BY CONSUMER)
  2. LYRICA [Suspect]
     Active Substance: PREGABALIN
     Indication: PSYCHOMOTOR HYPERACTIVITY
     Dosage: 75 MG, 3X/DAY
     Route: 048
     Dates: start: 2016

REACTIONS (3)
  - Pain [Unknown]
  - Nerve compression [Unknown]
  - Product use in unapproved indication [Unknown]

NARRATIVE: CASE EVENT DATE: 2018
